FAERS Safety Report 24953671 (Version 2)
Quarter: 2025Q1

REPORT INFORMATION
  Report Type: Spontaneous
  Country: US (occurrence: US)
  Receive Date: 20250211
  Receipt Date: 20250318
  Transmission Date: 20250408
  Serious: Yes (Death, Hospitalization, Other)
  Sender: HIKMA
  Company Number: US-HIKMA PHARMACEUTICALS USA INC.-US-H14001-25-01056

PATIENT
  Age: 67 Year
  Sex: Female
  Weight: 56.7 kg

DRUGS (4)
  1. DEXAMETHASONE [Suspect]
     Active Substance: DEXAMETHASONE
     Indication: Product used for unknown indication
     Dosage: UNKNOWN
     Route: 065
  2. INCB-123667 [Suspect]
     Active Substance: INCB-123667
     Indication: Endometrial cancer
     Dosage: 75 MILLIGRAM, QD
     Route: 048
     Dates: start: 20241107
  3. PALBOCICLIB [Suspect]
     Active Substance: PALBOCICLIB
     Indication: Endometrial cancer
     Dosage: 125 MILLIGRAM, QD
     Route: 048
     Dates: start: 20241107, end: 20241214
  4. BUPRENORPHINE [Concomitant]
     Active Substance: BUPRENORPHINE
     Indication: Product used for unknown indication
     Route: 065

REACTIONS (16)
  - Disease progression [Fatal]
  - Periorbital oedema [Unknown]
  - Flushing [Unknown]
  - Abdominal pain [Recovered/Resolved]
  - Oedema peripheral [None]
  - Dyspnoea [Unknown]
  - Hydronephrosis [Unknown]
  - Ascites [Unknown]
  - Metastases to peritoneum [Unknown]
  - Constipation [Unknown]
  - Skin discolouration [Unknown]
  - Peripheral swelling [Unknown]
  - Pain in extremity [Unknown]
  - Small intestinal obstruction [Unknown]
  - Stoma obstruction [Unknown]
  - Abdominal distension [Unknown]

NARRATIVE: CASE EVENT DATE: 20241130
